FAERS Safety Report 6988950-3 (Version None)
Quarter: 2010Q3

REPORT INFORMATION
  Report Type: 
  Country: None (occurrence: None)
  Receive Date: 20100916
  Receipt Date: 20090804
  Transmission Date: 20110219
  Serious: No
  Sender: FDA-Public Use
  Company Number: FR-PFIZER INC-2009242456

PATIENT
  Sex: Female

DRUGS (5)
  1. LYRICA [Suspect]
     Indication: BACK PAIN
     Dosage: 300 MG, 2X/DAY
     Route: 048
     Dates: start: 20090515
  2. LYRICA [Suspect]
     Route: 048
  3. PRAXINOR [Concomitant]
  4. AVLOCARDYL [Concomitant]
  5. METEOXANE [Concomitant]

REACTIONS (4)
  - MALAISE [None]
  - NECK PAIN [None]
  - NYSTAGMUS [None]
  - VOMITING [None]
